FAERS Safety Report 8963398 (Version 1)
Quarter: 2012Q4

REPORT INFORMATION
  Report Type: Report from Study
  Country: FR (occurrence: FR)
  Receive Date: 20121214
  Receipt Date: 20121214
  Transmission Date: 20130627
  Serious: Yes (Hospitalization)
  Sender: FDA-Public Use
  Company Number: FR-TEVA-375119ISR

PATIENT
  Age: 65 Year
  Sex: Male

DRUGS (8)
  1. VINCRISTINE [Suspect]
     Indication: MANTLE CELL LYMPHOMA
     Route: 065
  2. PREDNISOLONE [Suspect]
  3. DOXORUBICIN [Suspect]
     Indication: MANTLE CELL LYMPHOMA
  4. RITUXIMAB [Suspect]
     Indication: MANTLE CELL LYMPHOMA
     Route: 065
  5. CYCLOPHOSPHAMIDE [Suspect]
     Indication: MANTLE CELL LYMPHOMA
     Route: 065
  6. DEPAKINE [Concomitant]
     Dates: start: 20091012, end: 20091024
  7. FRAXODI [Concomitant]
     Dosage: .8 ml Daily;
     Dates: start: 20091012, end: 20091020
  8. TAZOCILLINE [Concomitant]
     Dosage: 16 Gram Daily;
     Dates: start: 20091012, end: 20091020

REACTIONS (2)
  - Septic shock [Unknown]
  - General physical health deterioration [Unknown]
